FAERS Safety Report 13214045 (Version 1)
Quarter: 2017Q1

REPORT INFORMATION
  Report Type: Report from Study
  Country: CA (occurrence: CA)
  Receive Date: 20170209
  Receipt Date: 20170209
  Transmission Date: 20170428
  Serious: Yes (Other)
  Sender: FDA-Public Use
  Company Number: CA-HLSUS-2017-CA-000119

PATIENT
  Age: 55 Year
  Sex: Male
  Weight: 83 kg

DRUGS (1)
  1. CLOZARIL [Suspect]
     Active Substance: CLOZAPINE
     Route: 048
     Dates: start: 19911028

REACTIONS (2)
  - Conduction disorder [Unknown]
  - QRS axis abnormal [Unknown]

NARRATIVE: CASE EVENT DATE: 20170131
